FAERS Safety Report 25326348 (Version 2)
Quarter: 2025Q2

REPORT INFORMATION
  Report Type: Spontaneous
  Country: ES (occurrence: ES)
  Receive Date: 20250516
  Receipt Date: 20250620
  Transmission Date: 20250717
  Serious: Yes (Life-Threatening, Hospitalization)
  Sender: PFIZER
  Company Number: None

PATIENT
  Age: 46 Year
  Sex: Female

DRUGS (3)
  1. LORAZEPAM [Interacting]
     Active Substance: LORAZEPAM
     Indication: Suicidal ideation
     Route: 048
     Dates: start: 20240910, end: 20240910
  2. ACETAMINOPHEN [Interacting]
     Active Substance: ACETAMINOPHEN
     Indication: Suicidal ideation
     Route: 048
     Dates: start: 20240910, end: 20240910
  3. TRAMADOL [Interacting]
     Active Substance: TRAMADOL
     Indication: Suicide attempt
     Route: 048
     Dates: start: 20240910, end: 20240910

REACTIONS (5)
  - Intentional overdose [Recovered/Resolved]
  - Depressed level of consciousness [Recovered/Resolved]
  - Suicide attempt [Recovered/Resolved]
  - Potentiating drug interaction [Recovered/Resolved]
  - Drug interaction [Recovered/Resolved]

NARRATIVE: CASE EVENT DATE: 20240910
